FAERS Safety Report 13618543 (Version 5)
Quarter: 2018Q1

REPORT INFORMATION
  Report Type: Spontaneous
  Country: US (occurrence: US)
  Receive Date: 20170606
  Receipt Date: 20180117
  Transmission Date: 20180508
  Serious: Yes (Hospitalization, Other)
  Sender: FDA-Public Use
  Company Number: US-PFIZER INC-2017248099

PATIENT
  Age: 79 Year
  Sex: Female
  Weight: 64 kg

DRUGS (30)
  1. EVOXAC [Concomitant]
     Active Substance: CEVIMELINE HYDROCHLORIDE
     Dosage: 30 MG, 3X/DAY
     Route: 048
  2. VAGIFEM [Concomitant]
     Active Substance: ESTRADIOL
     Dosage: 10 UG, 2X/WEEK
     Route: 067
  3. REVATIO [Suspect]
     Active Substance: SILDENAFIL CITRATE
     Indication: SLEEP APNOEA SYNDROME
     Dosage: 20 MG, 3X/DAY
     Route: 048
     Dates: start: 20090408
  4. REVATIO [Suspect]
     Active Substance: SILDENAFIL CITRATE
     Indication: RESTLESS LEGS SYNDROME
     Dosage: 20 MG, 3X/DAY
     Route: 048
     Dates: start: 20171023
  5. NEURONTIN [Concomitant]
     Active Substance: GABAPENTIN
     Dosage: 100 MG, 3X/DAY
     Route: 048
  6. PROAIR HFA [Concomitant]
     Active Substance: ALBUTEROL SULFATE
     Indication: DYSPNOEA
  7. IMODIUM [Concomitant]
     Active Substance: LOPERAMIDE HYDROCHLORIDE
     Dosage: 2 MG, DAILY
     Route: 048
  8. MUCOMYST [Concomitant]
     Active Substance: ACETYLCYSTEINE
     Dosage: 600 MG, 2X/DAY (MIX 6 MLS (600 MG TOTAL) IN DIET COKE) (STARTING THE DAY BEFORE AND DAY OF PROCEDURE
  9. AMOXIL [Concomitant]
     Active Substance: AMOXICILLIN
     Dosage: 500 MG, AS NEEDED (3 (THREE) TIMES DAILY AS NEEDED (PRIOR TO DENTAL PROCEDURES))
     Route: 048
  10. DEXILANT [Concomitant]
     Active Substance: DEXLANSOPRAZOLE
     Dosage: 30 MG, DAILY
     Route: 048
  11. LEXAPRO [Concomitant]
     Active Substance: ESCITALOPRAM OXALATE
     Dosage: 20 MG, DAILY
     Route: 048
  12. DEMADEX [Concomitant]
     Active Substance: TORSEMIDE
     Dosage: 150 MG, 1X/DAY
     Route: 048
  13. PROAIR HFA [Concomitant]
     Active Substance: ALBUTEROL SULFATE
     Indication: WHEEZING
     Dosage: INHALE 1 PUFF INTO THE LUNGS EVERY 4 (FOUR) HOURS AS NEEDED
     Route: 055
  14. ALREX [Concomitant]
     Active Substance: LOTEPREDNOL ETABONATE
     Indication: HYPERSENSITIVITY
     Dosage: 2 GTT, AS NEEDED, (PLACE 1 DROP INTO BOTH EYES 4 (FOUR) TIMES DAILY AS NEEDED (ALLERGIES))
     Route: 047
  15. REQUIP [Concomitant]
     Active Substance: ROPINIROLE HYDROCHLORIDE
     Dosage: 0.25 MG, 1X/DAY (AT BEDTIME)
     Route: 048
  16. NORCO [Concomitant]
     Active Substance: ACETAMINOPHEN\HYDROCODONE BITARTRATE
     Indication: PAIN
     Dosage: 5/325 MG, TAKE 1 TABLET EVERY 6 HOURS (DO NOT EXCEED A DAILY DOSE OF 4 TABLETS)
     Route: 048
  17. REVATIO [Suspect]
     Active Substance: SILDENAFIL CITRATE
     Indication: PULMONARY HYPERTENSION
     Dosage: 20 MG, 3X/DAY
     Route: 048
     Dates: start: 2014
  18. HI CAL [Concomitant]
     Dosage: 1000 MG, DAILY
     Route: 048
  19. FER IN SOL [Concomitant]
     Dosage: 325 MG, 1X/DAY (DAILY WITH BREAKFAST)
     Route: 048
  20. TOPROL XL [Concomitant]
     Active Substance: METOPROLOL SUCCINATE
     Dosage: 100 MG, 2X/DAY
     Route: 048
  21. VENTOLIN HFA [Concomitant]
     Active Substance: ALBUTEROL SULFATE
     Indication: WHEEZING
     Dosage: INHALE 1 PUFF INTO THE LUNGS EVERY 4 (FOUR) HOURS AS NEEDED
     Route: 055
  22. ZYLOPRIM [Concomitant]
     Active Substance: ALLOPURINOL
     Dosage: 100 MG, DAILY
     Route: 048
  23. SYMBICORT [Concomitant]
     Active Substance: BUDESONIDE\FORMOTEROL FUMARATE DIHYDRATE
     Indication: WHEEZING
     Dosage: BUDESONIDE 160 MCG/FORMOTEROL FUMARATE: 4.5 MCG INHALE 1 PUFF INTO THE LUNGS 2 TIMES DAILY AS NEEDED
     Route: 055
  24. REFRESH [Concomitant]
     Active Substance: UNSPECIFIED INGREDIENT
     Indication: DRY EYE
     Dosage: 1 GTT, AS NEEDED, (1 DROP 3 TIMES DAILY AS NEEDED)
     Route: 047
  25. FLONASE [Concomitant]
     Active Substance: FLUTICASONE PROPIONATE
     Indication: RHINITIS
     Dosage: PLACE 1 SPRAY INTO EACH NOSTRIL 3 TIMES DAILY AS NEEDED
     Route: 045
  26. KLOR-CON [Concomitant]
     Active Substance: POTASSIUM CHLORIDE
     Dosage: 20 MEQ, 2X/DAY
     Route: 048
  27. ALDACTONE [Concomitant]
     Active Substance: SPIRONOLACTONE
     Dosage: 25 MG, DAILY
     Route: 048
  28. VENTOLIN HFA [Concomitant]
     Active Substance: ALBUTEROL SULFATE
     Indication: DYSPNOEA
  29. COUMADIN [Concomitant]
     Active Substance: WARFARIN SODIUM
     Dosage: 3 MG, DAILY
     Route: 048
  30. OCUVITE [Concomitant]
     Active Substance: VITAMINS
     Dosage: 1 DF, DAILY
     Route: 048

REACTIONS (2)
  - Influenza [Unknown]
  - Colon cancer [Not Recovered/Not Resolved]

NARRATIVE: CASE EVENT DATE: 201704
